FAERS Safety Report 8512328-4 (Version None)
Quarter: 2012Q3

REPORT INFORMATION
  Report Type: 
  Country: None (occurrence: None)
  Receive Date: 20120716
  Receipt Date: 20120711
  Transmission Date: 20120928
  Serious: Yes (Other)
  Sender: FDA-Public Use
  Company Number: CA-ROCHE-GNE301475

PATIENT
  Sex: Male
  Weight: 77 kg

DRUGS (3)
  1. ADVAIR DISKUS 100/50 [Concomitant]
  2. XOLAIR [Suspect]
     Indication: ASTHMA
     Route: 058
     Dates: start: 20050708
  3. SYMBICORT [Concomitant]

REACTIONS (14)
  - PERIPHERAL COLDNESS [None]
  - WHEEZING [None]
  - EYE PRURITUS [None]
  - LYMPHADENOPATHY [None]
  - HYPERTENSION [None]
  - ASTHMA [None]
  - COUGH [None]
  - NASAL CONGESTION [None]
  - HEADACHE [None]
  - BRONCHITIS [None]
  - LACRIMATION INCREASED [None]
  - NASOPHARYNGITIS [None]
  - SINUS HEADACHE [None]
  - CHEST DISCOMFORT [None]
